FAERS Safety Report 8532195-2 (Version None)
Quarter: 2012Q3

REPORT INFORMATION
  Report Type: 
  Country: None (occurrence: None)
  Receive Date: 20120723
  Receipt Date: 20120716
  Transmission Date: 20120928
  Serious: Yes (Hospitalization, Other)
  Sender: FDA-Public Use
  Company Number: FR-ROCHE-1083606

PATIENT
  Sex: Female
  Weight: 70 kg

DRUGS (7)
  1. AVASTIN [Suspect]
     Indication: BREAST CANCER
     Route: 042
     Dates: start: 20110729, end: 20120702
  2. LEVOTHYROXINE SODIUM [Concomitant]
     Dates: start: 20070101
  3. ARIXTRA [Concomitant]
     Dates: start: 20070101
  4. XELODA [Suspect]
     Indication: BREAST CANCER
     Route: 048
     Dates: start: 20110729, end: 20120702
  5. ACETAMINOPHEN [Concomitant]
     Dosage: 1/G
     Dates: start: 20120630, end: 20120702
  6. OLMESARTAN MEDOXOMIL [Concomitant]
     Dates: start: 20070101
  7. ARIXTRA [Concomitant]
     Dates: start: 20120630, end: 20120702

REACTIONS (2)
  - PLEURAL EFFUSION [None]
  - PULMONARY EMBOLISM [None]
